FAERS Safety Report 24529567 (Version 1)
Quarter: 2024Q4

REPORT INFORMATION
  Report Type: Spontaneous
  Country: US (occurrence: US)
  Receive Date: 20241021
  Receipt Date: 20241021
  Transmission Date: 20250115
  Serious: Yes (Death, Other)
  Sender: AMGEN
  Company Number: US-AMGEN-USASP2024205496

PATIENT
  Age: 39 Year
  Sex: Male

DRUGS (2)
  1. BEVACIZUMAB [Suspect]
     Active Substance: BEVACIZUMAB
     Indication: Glioblastoma
     Dosage: 10 MILLIGRAM/KILOGRAM, Q2WK
     Route: 040
  2. PEMBROLIZUMAB [Concomitant]
     Active Substance: PEMBROLIZUMAB
     Indication: Glioblastoma
     Dosage: 200 MILLIGRAM, Q3WK
     Route: 040

REACTIONS (4)
  - Death [Fatal]
  - Glioblastoma [Unknown]
  - CD4 lymphocytes decreased [Recovered/Resolved]
  - Viraemia [Unknown]
